FAERS Safety Report 4383854-7 (Version None)
Quarter: 2004Q2

REPORT INFORMATION
  Report Type: 
  Country: None (occurrence: None)
  Receive Date: 20040614
  Receipt Date: 20040317
  Transmission Date: 20050107
  Serious: Yes (Hospitalization)
  Sender: FDA-Public Use
  Company Number: M04-341-184

PATIENT
  Age: 70 Year
  Sex: Female
  Weight: 42 kg

DRUGS (7)
  1. VELCADE [Suspect]
     Indication: MULTIPLE MYELOMA
     Dosage: 1.8 MG: INTRAVENOUS BOLUS
     Route: 040
     Dates: start: 20301024, end: 20031126
  2. CAPTOPRIL [Concomitant]
  3. MEGESTROL ACETATE [Concomitant]
  4. MORPHINE SULFATE [Concomitant]
  5. PAROXETINE HYDROCHLORIDE [Concomitant]
  6. TAMOXIFEN [Concomitant]
  7. THALOMID [Concomitant]

REACTIONS (3)
  - BLOOD POTASSIUM DECREASED [None]
  - DIARRHOEA [None]
  - DISEASE PROGRESSION [None]
